FAERS Safety Report 15582406 (Version 1)
Quarter: 2018Q4

REPORT INFORMATION
  Report Type: Spontaneous
  Country: FR (occurrence: FR)
  Receive Date: 20181102
  Receipt Date: 20181102
  Transmission Date: 20190205
  Serious: Yes (Death)
  Sender: FDA-Public Use
  Company Number: FR-TEVA-2018-FR-971351

PATIENT
  Age: 92 Year
  Sex: Male
  Weight: 75.4 kg

DRUGS (6)
  1. ELIQUIS [Suspect]
     Active Substance: APIXABAN
     Indication: CEREBROVASCULAR ACCIDENT
     Dosage: 2 DOSAGE FORMS DAILY;
     Route: 048
     Dates: end: 20181001
  2. UVEDOSE 100 000 UI, SOLUTION BUVABLE EN AMPOULE [Concomitant]
     Active Substance: CHOLECALCIFEROL
  3. BISOCE 2,5 MG, COMPRIM? PELLICUL? S?CABLE [Suspect]
     Active Substance: BISOPROLOL FUMARATE
     Indication: HYPERTENSION
     Dosage: 1 DOSAGE FORMS DAILY;
     Route: 048
  4. DOLIPRANE [Concomitant]
     Active Substance: ACETAMINOPHEN
  5. RAMIPRIL. [Suspect]
     Active Substance: RAMIPRIL
     Indication: HYPERTENSION
     Dosage: 3.75MG-0-2.5MG
     Route: 048
     Dates: end: 20181001
  6. FINASTERIDE. [Suspect]
     Active Substance: FINASTERIDE
     Indication: BENIGN PROSTATIC HYPERPLASIA
     Dosage: 60 MILLIGRAM DAILY; 1-1/2-0
     Route: 048
     Dates: end: 20180925

REACTIONS (6)
  - Coma [Fatal]
  - Acute kidney injury [Fatal]
  - Fall [Fatal]
  - Agitation [Fatal]
  - Confusional state [Fatal]
  - Dehydration [Fatal]

NARRATIVE: CASE EVENT DATE: 20180920
